FAERS Safety Report 26181466 (Version 2)
Quarter: 2025Q4

REPORT INFORMATION
  Report Type: Spontaneous
  Country: JP (occurrence: JP)
  Receive Date: 20251221
  Receipt Date: 20251224
  Transmission Date: 20260117
  Serious: Yes (Hospitalization)
  Sender: ELI LILLY AND COMPANY
  Company Number: JP-ELI_LILLY_AND_COMPANY-JP202512019317

PATIENT
  Age: 73 Year
  Sex: Male
  Weight: 72.8 kg

DRUGS (10)
  1. CYRAMZA [Suspect]
     Active Substance: RAMUCIRUMAB
     Indication: Gastric cancer
     Dosage: 470 MG, CYCLICAL
     Route: 041
     Dates: start: 20250508, end: 20250522
  2. PACLITAXEL [Concomitant]
     Active Substance: PACLITAXEL
     Indication: Gastric cancer
     Dosage: 130 MG
  3. PACLITAXEL [Concomitant]
     Active Substance: PACLITAXEL
     Dosage: 100 MG
  4. GRANISETRON HYDROCHLORIDE [Concomitant]
     Active Substance: GRANISETRON HYDROCHLORIDE
     Dosage: UNK
  5. DEXAMETHASONE SODIUM PHOSPHATE [Concomitant]
     Active Substance: DEXAMETHASONE SODIUM PHOSPHATE
     Dosage: UNK
  6. GASTER [Concomitant]
     Active Substance: FAMOTIDINE
     Dosage: UNK
  7. POLARAMINE [Concomitant]
     Active Substance: DEXCHLORPHENIRAMINE MALEATE
     Dosage: UNK
  8. MAGNESIUM OXIDE [Concomitant]
     Active Substance: MAGNESIUM OXIDE
     Dosage: UNK
  9. SENNA [Concomitant]
     Active Substance: SENNOSIDES
     Dosage: UNK
  10. SODIUM CHLORIDE;WATER [Concomitant]
     Dosage: UNK

REACTIONS (2)
  - Peritonitis [Unknown]
  - Gastric perforation [Not Recovered/Not Resolved]

NARRATIVE: CASE EVENT DATE: 20250604
